FAERS Safety Report 4522638-3 (Version None)
Quarter: 2004Q4

REPORT INFORMATION
  Report Type: 
  Country: None (occurrence: None)
  Receive Date: 20041207
  Receipt Date: 20041124
  Transmission Date: 20050328
  Serious: Yes (Hospitalization)
  Sender: FDA-Public Use
  Company Number: 2004SE06568

PATIENT
  Age: 58 Year
  Sex: Male

DRUGS (5)
  1. PLENDIL [Suspect]
     Indication: HYPERTENSION
     Dosage: 5 MG DAILY PO
     Route: 048
     Dates: start: 20041101, end: 20041103
  2. PREDNISON [Concomitant]
  3. GOPTEN [Concomitant]
  4. LOKREN [Concomitant]
  5. SALAZOPYRIN [Concomitant]

REACTIONS (2)
  - DERMATITIS ALLERGIC [None]
  - DRUG TOXICITY [None]
